FAERS Safety Report 18200351 (Version 1)
Quarter: 2020Q3

REPORT INFORMATION
  Report Type: Spontaneous
  Country: CN (occurrence: CN)
  Receive Date: 20200826
  Receipt Date: 20200826
  Transmission Date: 20201103
  Serious: Yes (Hospitalization)
  Sender: FDA-Public Use
  Company Number: CN-ELI_LILLY_AND_COMPANY-CN202008009152

PATIENT
  Sex: Male

DRUGS (5)
  1. HUMALOG [Suspect]
     Active Substance: INSULIN LISPRO
     Dosage: 31 OR 32 INTERNATIONAL UNIT, AFTERNOON
     Route: 058
  2. HUMALOG [Suspect]
     Active Substance: INSULIN LISPRO
     Indication: DIABETES MELLITUS
     Dosage: 25, 26, 28 INTERNATIONAL UNIT, PRN
     Route: 058
     Dates: start: 2010
  3. BASALIN [Concomitant]
     Active Substance: INSULIN GLARGINE
     Indication: PRODUCT USED FOR UNKNOWN INDICATION
  4. HUMALOG [Suspect]
     Active Substance: INSULIN LISPRO
     Dosage: 31 OR 32 INTERNATIONAL UNIT, EACH MORNING
     Route: 058
  5. HUMALOG [Suspect]
     Active Substance: INSULIN LISPRO
     Dosage: 31 OR 32 INTERNATIONAL UNIT, EACH EVENING
     Route: 058

REACTIONS (3)
  - Fracture [Unknown]
  - Impaired healing [Unknown]
  - Diabetes mellitus inadequate control [Unknown]
